FAERS Safety Report 8558274-1 (Version None)
Quarter: 2012Q3

REPORT INFORMATION
  Report Type: 
  Country: None (occurrence: None)
  Receive Date: 20120801
  Receipt Date: 20120726
  Transmission Date: 20120928
  Serious: Yes (Other)
  Sender: FDA-Public Use
  Company Number: US-PURDUE-USA-2012-0090633

PATIENT
  Sex: Male

DRUGS (1)
  1. OXYCONTIN [Suspect]
     Indication: PAIN
     Dosage: 60 MG, UNK

REACTIONS (6)
  - INTENTIONAL DRUG MISUSE [None]
  - LEG AMPUTATION [None]
  - SURGERY [None]
  - PAIN [None]
  - INSOMNIA [None]
  - STAPHYLOCOCCAL INFECTION [None]
